FAERS Safety Report 7286097-2 (Version None)
Quarter: 2011Q1

REPORT INFORMATION
  Report Type: 
  Country: None (occurrence: None)
  Receive Date: 20110131
  Receipt Date: 20110113
  Transmission Date: 20110831
  Serious: Yes (Death)
  Sender: FDA-Public Use
  Company Number: IMP_05338_2011

PATIENT
  Age: 28 Year
  Sex: Female

DRUGS (3)
  1. ALPRAZOLAM [Suspect]
     Indication: PRODUCT USED FOR UNKNOWN INDICATION
     Dosage: (DF ORAL)
     Route: 048
  2. COCAINE [Suspect]
     Dosage: (ORAL)
     Route: 048
  3. ETHANOL [Suspect]
     Dosage: (ORAL)
     Route: 048

REACTIONS (4)
  - POISONING [None]
  - CARDIAC ARREST [None]
  - DRUG ABUSE [None]
  - RESPIRATORY ARREST [None]
